FAERS Safety Report 23366693 (Version 1)
Quarter: 2024Q1

REPORT INFORMATION
  Report Type: Spontaneous
  Country: US (occurrence: None)
  Receive Date: 20240104
  Receipt Date: 20240104
  Transmission Date: 20240410
  Serious: Yes (unspecified)
  Sender: FDA-Public Use
  Company Number: None

PATIENT
  Age: 67 Year
  Sex: Male
  Weight: 72.5 kg

DRUGS (2)
  1. ENFORTUMAB VEDOTIN [Suspect]
     Active Substance: ENFORTUMAB VEDOTIN
     Indication: Transitional cell carcinoma
     Dosage: 87 MG DAY 1+8, Q21DAYS INTRAVENOUS?
     Route: 042
     Dates: start: 20231006
  2. KEYTRUDA [Suspect]
     Active Substance: PEMBROLIZUMAB
     Indication: Transitional cell carcinoma
     Dosage: 200 MG Q3WEEKS INTRAVENOUS?
     Route: 042
     Dates: start: 20231006

REACTIONS (2)
  - Administration site extravasation [None]
  - Therapy interrupted [None]

NARRATIVE: CASE EVENT DATE: 20231215
